FAERS Safety Report 5836147-2 (Version None)
Quarter: 2008Q3

REPORT INFORMATION
  Report Type: 
  Country: None (occurrence: None)
  Receive Date: 20080805
  Receipt Date: 20080722
  Transmission Date: 20090109
  Serious: Yes (Life-Threatening, Hospitalization)
  Sender: FDA-Public Use
  Company Number: GP-08-07-0009

PATIENT
  Age: 73 Year
  Sex: Female

DRUGS (10)
  1. FLUCONAZOLE [Suspect]
     Dosage: 100 MG DAILY
  2. CITALOPRAM HYDROBROMIDE [Suspect]
     Indication: DEPRESSION
     Dosage: 40 MG DAILY
  3. CLONAZEPAM [Concomitant]
  4. LEVOFLOXACIN [Concomitant]
  5. METOPROLOL XL 100 MG [Concomitant]
  6. ACYCLOVIR [Concomitant]
  7. VANCOMYCIN [Concomitant]
  8. AMLODIPINE [Concomitant]
  9. VALSARTAN [Concomitant]
  10. PANTOPRAZOLE SODIUM [Concomitant]

REACTIONS (7)
  - DELIRIUM [None]
  - DISORIENTATION [None]
  - DRUG INTERACTION [None]
  - DRUG TOXICITY [None]
  - NEUTROPENIA [None]
  - PYREXIA [None]
  - SOMNOLENCE [None]
